FAERS Safety Report 8394969-0 (Version None)
Quarter: 2012Q2

REPORT INFORMATION
  Report Type: 
  Country: None (occurrence: None)
  Receive Date: 20120530
  Receipt Date: 20120215
  Transmission Date: 20120825
  Serious: Yes (Life-Threatening, Hospitalization, Other)
  Sender: FDA-Public Use
  Company Number: US-GLAXOSMITHKLINE-A0966589A

PATIENT
  Age: 37 Year
  Sex: Female

DRUGS (3)
  1. REVATIO [Concomitant]
     Dosage: 40MG THREE TIMES PER DAY
  2. FLOLAN [Suspect]
     Indication: PULMONARY ARTERIAL HYPERTENSION
     Route: 042
     Dates: start: 20060626
  3. COUMADIN [Concomitant]
     Dosage: 7.5MG PER DAY

REACTIONS (1)
  - SEPSIS [None]
